FAERS Safety Report 16567112 (Version 1)
Quarter: 2019Q3

REPORT INFORMATION
  Report Type: Spontaneous
  Country: DE (occurrence: DE)
  Receive Date: 20190712
  Receipt Date: 20190712
  Transmission Date: 20191004
  Serious: Yes (Hospitalization)
  Sender: FDA-Public Use
  Company Number: DE-ASTRAZENECA-2019SE97148

PATIENT
  Age: 81 Year
  Sex: Female

DRUGS (9)
  1. METAMIZOLE [Concomitant]
     Active Substance: METAMIZOLE
     Dosage: UNKNOWN MG, DEMAND
  2. FUROSEMIDE. [Concomitant]
     Active Substance: FUROSEMIDE
     Dosage: 20 MG, 0-1-0-0
  3. AMLODIPINE [Concomitant]
     Active Substance: AMLODIPINE BESYLATE
     Dosage: 5 MG, DEMAND
  4. MOVICOL [Concomitant]
     Active Substance: POLYETHYLENE GLYCOL 3350\POTASSIUM CHLORIDE\SODIUM BICARBONATE\SODIUM CHLORIDE
     Dosage: UNKNOWN MG, 1-0-1-0
  5. OMEPRAZOL [Suspect]
     Active Substance: OMEPRAZOLE
     Dosage: 40 MG, 1-1-1-0
     Route: 048
  6. LORMETAZEPAM [Concomitant]
     Active Substance: LORMETAZEPAM
     Dosage: 2 MG, 0-0-0-1
  7. SPIRONOLACTONE. [Concomitant]
     Active Substance: SPIRONOLACTONE
     Dosage: 50 MG, 0-1-0-0
  8. METOPROLOL. [Concomitant]
     Active Substance: METOPROLOL
     Dosage: 23.75 MG, 1-0-1-0
  9. MARCUMAR [Suspect]
     Active Substance: PHENPROCOUMON
     Dosage: 3.0MG UNKNOWN
     Route: 065

REACTIONS (3)
  - Product prescribing error [Unknown]
  - Abdominal pain upper [Unknown]
  - Haematochezia [Unknown]
